FAERS Safety Report 14407542 (Version 1)
Quarter: 2018Q1

REPORT INFORMATION
  Report Type: Spontaneous
  Country: US (occurrence: US)
  Receive Date: 20180116
  Receipt Date: 20180116
  Transmission Date: 20180509
  Serious: Yes (Hospitalization)
  Sender: FDA-Public Use
  Company Number: None

PATIENT
  Age: 55 Year
  Sex: Female
  Weight: 74.5 kg

DRUGS (10)
  1. NOVOLOG [Suspect]
     Active Substance: INSULIN ASPART
  2. OMEPRAZOLE. [Concomitant]
     Active Substance: OMEPRAZOLE
  3. ALBUTEROL. [Concomitant]
     Active Substance: ALBUTEROL
  4. LOSARTAN. [Concomitant]
     Active Substance: LOSARTAN
  5. LEVEMIR [Suspect]
     Active Substance: INSULIN DETEMIR
  6. BUPROPION. [Concomitant]
     Active Substance: BUPROPION
  7. CHOLECALCIFEROL [Concomitant]
     Active Substance: CHOLECALCIFEROL
  8. PRAVASTATIN. [Concomitant]
     Active Substance: PRAVASTATIN
  9. RIFAXIMIN. [Concomitant]
     Active Substance: RIFAXIMIN
  10. VENLAFAXINE [Concomitant]
     Active Substance: VENLAFAXINE HYDROCHLORIDE

REACTIONS (6)
  - Mental status changes [None]
  - Therapy change [None]
  - Hypoglycaemia [None]
  - Confusional state [None]
  - Vomiting [None]
  - Hyperhidrosis [None]

NARRATIVE: CASE EVENT DATE: 20170616
